FAERS Safety Report 5866879-1 (Version None)
Quarter: 2008Q3

REPORT INFORMATION
  Report Type: 
  Country: None (occurrence: None)
  Receive Date: 20080827
  Receipt Date: 20080814
  Transmission Date: 20090109
  Serious: Yes (Death)
  Sender: FDA-Public Use
  Company Number: 8029258

PATIENT
  Age: 30 Year
  Sex: Male

DRUGS (3)
  1. KEPPRA [Suspect]
     Indication: MYOCLONIC EPILEPSY
     Dosage: 500 MG /D
     Dates: start: 20050801, end: 20050101
  2. KEPPRA [Suspect]
     Indication: MYOCLONIC EPILEPSY
     Dosage: 500 MG 2/D
     Dates: start: 20050101, end: 20050101
  3. TEGRETOL [Concomitant]

REACTIONS (1)
  - ROAD TRAFFIC ACCIDENT [None]
